FAERS Safety Report 4470565-2 (Version None)
Quarter: 2004Q4

REPORT INFORMATION
  Report Type: 
  Country: None (occurrence: None)
  Receive Date: 20041005
  Receipt Date: 20040323
  Transmission Date: 20050328
  Serious: Yes (Death)
  Sender: FDA-Public Use
  Company Number: 200414990BWH

PATIENT
  Age: 53 Year
  Sex: Male
  Weight: 219.9946 kg

DRUGS (5)
  1. LEVITRA [Suspect]
     Indication: ERECTILE DYSFUNCTION
     Dosage: ORAL
     Route: 048
  2. VICODIN [Concomitant]
  3. SEREVENT [Concomitant]
  4. ALBUTEROL [Concomitant]
  5. NEURONTIN [Concomitant]

REACTIONS (2)
  - CARDIAC ARREST [None]
  - CHRONIC OBSTRUCTIVE AIRWAYS DISEASE [None]
